FAERS Safety Report 22198203 (Version 1)
Quarter: 2023Q2

REPORT INFORMATION
  Report Type: Spontaneous
  Country: US (occurrence: None)
  Receive Date: 20230411
  Receipt Date: 20230411
  Transmission Date: 20230722
  Serious: Yes (Hospitalization)
  Sender: FDA-Public Use
  Company Number: None

PATIENT
  Age: 84 Year
  Sex: Female
  Weight: 63.4 kg

DRUGS (3)
  1. PAXLOVID [Suspect]
     Active Substance: NIRMATRELVIR\RITONAVIR
     Indication: COVID-19 treatment
     Dosage: 300 MG TWICE A DAY ORAL?
     Route: 048
     Dates: start: 20230221, end: 20230222
  2. FENTANYL [Concomitant]
  3. QUETIAPINE [Concomitant]

REACTIONS (3)
  - Asthenia [None]
  - Lethargy [None]
  - Musculoskeletal stiffness [None]

NARRATIVE: CASE EVENT DATE: 20230225
